FAERS Safety Report 5540671-X (Version None)
Quarter: 2007Q4

REPORT INFORMATION
  Report Type: 
  Country: None (occurrence: None)
  Receive Date: 20071208
  Receipt Date: 20070924
  Transmission Date: 20080405
  Serious: No
  Sender: FDA-Public Use
  Company Number: US-AMGEN-KDL240594

PATIENT
  Sex: Female
  Weight: 85.4 kg

DRUGS (5)
  1. ENBREL [Suspect]
     Indication: RHEUMATOID ARTHRITIS
     Route: 058
     Dates: start: 20070731
  2. METHOTREXATE [Concomitant]
     Route: 048
     Dates: start: 20061001
  3. FOLIC ACID [Concomitant]
     Dates: start: 20061001
  4. FOSAMAX [Concomitant]
     Dates: start: 20061001
  5. LORTAB [Concomitant]
     Dates: start: 20061001

REACTIONS (1)
  - INJECTION SITE PAIN [None]
